FAERS Safety Report 15583031 (Version 1)
Quarter: 2018Q4

REPORT INFORMATION
  Report Type: Spontaneous
  Country: DE (occurrence: DE)
  Receive Date: 20181105
  Receipt Date: 20181105
  Transmission Date: 20190205
  Serious: Yes (Other)
  Sender: FDA-Public Use
  Company Number: DE-PFIZER INC-2018448266

PATIENT
  Age: 48 Year
  Sex: Male

DRUGS (2)
  1. SORTIS [Suspect]
     Active Substance: ATORVASTATIN
     Dosage: 20 MG, 1X/DAY
     Route: 065
     Dates: start: 19990922, end: 20010821
  2. CEDUR [Suspect]
     Active Substance: BEZAFIBRATE
     Dosage: 1 DF, 1X/DAY
     Route: 065
     Dates: start: 19990922, end: 20010821

REACTIONS (2)
  - Muscle necrosis [Unknown]
  - Rhabdomyolysis [Unknown]

NARRATIVE: CASE EVENT DATE: 200108
